FAERS Safety Report 15366181 (Version 1)
Quarter: 2018Q3

REPORT INFORMATION
  Report Type: Report from Study
  Country: AU (occurrence: AU)
  Receive Date: 20180910
  Receipt Date: 20180910
  Transmission Date: 20181010
  Serious: Yes (Hospitalization)
  Sender: FDA-Public Use
  Company Number: AU-MYLANLABS-2018M1065668

PATIENT
  Age: 40 Year
  Sex: Male

DRUGS (1)
  1. EMTRICITABINE,TENOFOVIR MYLAN [Suspect]
     Active Substance: EMTRICITABINE\TENOFOVIR
     Indication: PRODUCT USED FOR UNKNOWN INDICATION
     Dosage: UNK, QD
     Route: 048
     Dates: start: 20170912

REACTIONS (3)
  - Post procedural infection [Recovered/Resolved]
  - Abdominal infection [Recovered/Resolved]
  - Appendicitis perforated [Recovered/Resolved]

NARRATIVE: CASE EVENT DATE: 20180814
